FAERS Safety Report 17938451 (Version 1)
Quarter: 2020Q2

REPORT INFORMATION
  Report Type: Spontaneous
  Country: DE (occurrence: DE)
  Receive Date: 20200624
  Receipt Date: 20200624
  Transmission Date: 20200714
  Serious: Yes (Hospitalization)
  Sender: FDA-Public Use
  Company Number: DE-MYLANLABS-2020M1057681

PATIENT
  Age: 83 Year
  Sex: Female
  Weight: 57 kg

DRUGS (11)
  1. NALOXONE HYDROCHLORIDE W/TILIDINE HYDROCHLORI [Suspect]
     Active Substance: NALOXONE HYDROCHLORIDE\TILIDINE HYDROCHLORIDE
     Indication: PRODUCT USED FOR UNKNOWN INDICATION
     Dosage: 4|50 MG, BEI BEDARF, TABLETTEN
     Route: 065
  2. OMEPRAZOL                          /00661201/ [Concomitant]
     Active Substance: OMEPRAZOLE
     Dosage: 20 MG, 1-0-0-0, TABLETTEN
     Route: 065
  3. L-THYROX JOD HEXAL [Concomitant]
     Dosage: 75|150 ?G, 1-0-0-0, TABLETTEN
     Route: 065
  4. LERCANIDIPINE [Concomitant]
     Active Substance: LERCANIDIPINE
     Dosage: 10 MG, 0-0-1-0, TABLETTEN
     Route: 065
  5. PRAVASTATIN. [Concomitant]
     Active Substance: PRAVASTATIN
     Dosage: 20 MG, 0-0-1-0, TABLETTEN
     Route: 065
  6. CANDESARTAN. [Suspect]
     Active Substance: CANDESARTAN
     Indication: PRODUCT USED FOR UNKNOWN INDICATION
     Dosage: 32 MG, 1-0-0-0, TABLETTEN
     Route: 065
  7. CHLORTALIDONE [Suspect]
     Active Substance: CHLORTHALIDONE
     Indication: PRODUCT USED FOR UNKNOWN INDICATION
     Dosage: 25 MG, PAUSE, TABLETTEN
     Route: 065
  8. NIFEDIPINE. [Concomitant]
     Active Substance: NIFEDIPINE
     Dosage: 5 MG, BEI BEDARF, KAPSELN
     Route: 065
  9. NOVAMINSULFON [Concomitant]
     Active Substance: METAMIZOLE
     Dosage: 500 MG, 1-1-1-1, TABLETTEN
     Route: 065
  10. DIMENHYDRINAT [Concomitant]
     Active Substance: DIMENHYDRINATE
     Dosage: 150 MG, BEI BEDARF, SUPPOSITORIEN
     Route: 065
  11. BISACODYL. [Concomitant]
     Active Substance: BISACODYL
     Dosage: 10 MG, 2X, SUPPOSITORIEN
     Route: 065

REACTIONS (6)
  - Nausea [Unknown]
  - Flatulence [Unknown]
  - General physical health deterioration [Unknown]
  - Abdominal distension [Unknown]
  - Vomiting [Unknown]
  - Constipation [Unknown]
